FAERS Safety Report 24027422 (Version 1)
Quarter: 2024Q2

REPORT INFORMATION
  Report Type: Spontaneous
  Country: IT (occurrence: IT)
  Receive Date: 20240628
  Receipt Date: 20240628
  Transmission Date: 20240715
  Serious: Yes (Hospitalization)
  Sender: FDA-Public Use
  Company Number: None

PATIENT
  Age: 78 Year
  Sex: Male

DRUGS (5)
  1. BEVACIZUMAB [Suspect]
     Active Substance: BEVACIZUMAB
     Indication: Colon cancer
     Dosage: 430 MILLIGRAM (START OF THERAPY 09 JAN 2024 - THERAPY EVERY 14 DAYS- 1 ST CYCLE-BOLUS INFUSION)
     Route: 042
     Dates: start: 20240109, end: 20240109
  2. FLUOROURACIL [Suspect]
     Active Substance: FLUOROURACIL
     Indication: Colon cancer
     Dosage: 640 MILLIGRAM (START OF THERAPY 09 JAN 2024 - THERAPY EVERY 14 DAYS- 1 ST CYCLE-BOLUS INFUSION)
     Route: 040
     Dates: start: 20240109, end: 20240109
  3. FLUOROURACIL [Suspect]
     Active Substance: FLUOROURACIL
     Dosage: 3800 MILLIGRAM (START OF THERAPY 09 JAN 2024 - THERAPY EVERY 14 DAYS- 1 ST CYCLE-BOLUS INFUSION - CO
     Route: 040
     Dates: start: 20240109, end: 20240111
  4. IRINOTECAN [Suspect]
     Active Substance: IRINOTECAN
     Indication: Colon cancer
     Dosage: 290 MILLIGRAM (START OF THERAPY 09 JAN 2024 - THERAPY EVERY 14 DAYS- 1 ST CYCLE-BOLUS INFUSION)
     Route: 042
     Dates: start: 20240109, end: 20240109
  5. LEVOLEUCOVORIN [Concomitant]
     Active Substance: LEVOLEUCOVORIN
     Indication: Product used for unknown indication
     Dosage: UNK
     Route: 065

REACTIONS (2)
  - Faecaloma [Recovering/Resolving]
  - Abdominal pain [Recovering/Resolving]

NARRATIVE: CASE EVENT DATE: 20240113
